FAERS Safety Report 22080870 (Version 6)
Quarter: 2024Q4

REPORT INFORMATION
  Report Type: Spontaneous
  Country: ES (occurrence: ES)
  Receive Date: 20230309
  Receipt Date: 20241218
  Transmission Date: 20250115
  Serious: Yes (Disabling)
  Sender: TEVA
  Company Number: ES-TEVA-2023-ES-2862834

PATIENT
  Age: 58 Year
  Sex: Female

DRUGS (5)
  1. ACTIQ [Suspect]
     Active Substance: FENTANYL CITRATE
     Indication: Fibromyalgia
     Route: 065
     Dates: start: 2024
  2. ACTIQ [Suspect]
     Active Substance: FENTANYL CITRATE
     Indication: Fibromyalgia
     Dosage: DOSAGE TEXT: STARTED 3-4 YEARS AGO
     Route: 002
  3. ACTIQ [Suspect]
     Active Substance: FENTANYL CITRATE
     Indication: Fibromyalgia
     Dosage: DOSAGE TEXT: STARTED 3-4 YEARS AGO
     Route: 002
  4. ACTIQ [Suspect]
     Active Substance: FENTANYL CITRATE
     Indication: Fibromyalgia
     Dosage: DOSAGE TEXT: STARTED 3-4 YEARS AGO
     Route: 002
  5. ACTIQ [Suspect]
     Active Substance: FENTANYL CITRATE
     Indication: Fibromyalgia
     Dosage: 30 SUCKING TABLETS (LOZENGES) ORAL
     Route: 050

REACTIONS (18)
  - Pain [Not Recovered/Not Resolved]
  - Product physical issue [Unknown]
  - Product administration error [Unknown]
  - Mouth injury [Not Recovered/Not Resolved]
  - Product solubility abnormal [Unknown]
  - Product quality issue [Unknown]
  - Product prescribing error [Unknown]
  - Poor quality product administered [Unknown]
  - Lip pain [Unknown]
  - Bedridden [Unknown]
  - Helplessness [Unknown]
  - Feeling abnormal [Unknown]
  - Product taste abnormal [Unknown]
  - Discomfort [Unknown]
  - Product use complaint [Unknown]
  - Intentional product use issue [Unknown]
  - Speech disorder [Not Recovered/Not Resolved]
  - Stomatitis [Not Recovered/Not Resolved]
